FAERS Safety Report 13657889 (Version 2)
Quarter: 2017Q3

REPORT INFORMATION
  Report Type: Spontaneous
  Country: JP (occurrence: JP)
  Receive Date: 20170616
  Receipt Date: 20170807
  Transmission Date: 20171127
  Serious: Yes (Death, Hospitalization, Other)
  Sender: FDA-Public Use
  Company Number: JP-TAKEDA-2017TJP012550

PATIENT
  Age: 77 Year
  Sex: Female
  Weight: 30 kg

DRUGS (112)
  1. NESINA [Suspect]
     Active Substance: ALOGLIPTIN BENZOATE
     Dosage: 6.25 MG, QD
     Route: 048
     Dates: start: 20141213, end: 20160519
  2. CALCIUM CARBONATE. [Concomitant]
     Active Substance: CALCIUM CARBONATE
     Indication: HYPERPHOSPHATAEMIA
     Dosage: 0.5 G, TID
     Route: 048
     Dates: start: 20000712, end: 20040908
  3. SENNOSIDE A+B [Concomitant]
     Active Substance: SENNOSIDES A AND B
     Indication: CONSTIPATION
     Dosage: UNK
     Route: 048
  4. PARACETAMOL [Concomitant]
     Active Substance: ACETAMINOPHEN
     Indication: PYREXIA
     Dosage: 400 MG, QD
     Route: 048
     Dates: start: 20150622
  5. STIBRON [Concomitant]
     Dosage: UNK
     Route: 062
     Dates: start: 20140612
  6. HUMULIN N [Concomitant]
     Active Substance: INSULIN HUMAN
     Dosage: 4 IU, QD
     Route: 050
     Dates: start: 20141119, end: 20141127
  7. EPOGIN [Concomitant]
     Active Substance: ERYTHROPOIETIN
     Dosage: 3000 IU, 3/WEEK
     Route: 050
     Dates: start: 20141002, end: 20150103
  8. EPOGIN [Concomitant]
     Active Substance: ERYTHROPOIETIN
     Dosage: 1500 IU, 3/WEEK
     Route: 050
     Dates: start: 20150105, end: 20150215
  9. EPOGIN [Concomitant]
     Active Substance: ERYTHROPOIETIN
     Dosage: 1500 IU, 3/WEEK
     Route: 050
     Dates: start: 20151210, end: 20160221
  10. DAIKENCHUTO [Concomitant]
     Active Substance: HERBALS
     Indication: CONSTIPATION
     Dosage: UNK
     Route: 048
     Dates: start: 20141118
  11. NESP [Concomitant]
     Active Substance: DARBEPOETIN ALFA
     Route: 050
  12. BUFFERIN                           /00009201/ [Concomitant]
     Active Substance: ASPIRIN\DIHYDROXYALUMINUM AMINOACETATE ANHYDROUS\MAGNESIUM CARBONATE
     Indication: ANGINA PECTORIS
     Dosage: 81 MG, QD
     Route: 048
     Dates: start: 20031110, end: 20051003
  13. PRAVASTATIN SODIUM. [Concomitant]
     Active Substance: PRAVASTATIN SODIUM
     Indication: HYPERCHOLESTEROLAEMIA
     Dosage: 10 MG, QD
     Route: 048
     Dates: start: 20121109, end: 20130311
  14. CALCIUM CARBONATE. [Concomitant]
     Active Substance: CALCIUM CARBONATE
     Dosage: 0.5 G, BID
     Route: 048
     Dates: start: 20040909, end: 20080903
  15. PANTETHINE [Concomitant]
     Active Substance: PANTETHINE
     Dosage: 1 G, TID
     Route: 048
     Dates: start: 20141120, end: 20160519
  16. CALFINA [Concomitant]
     Active Substance: ALFACALCIDOL
     Dosage: 0.25 UG, QOD
     Route: 048
     Dates: start: 20130424, end: 20130607
  17. CALFINA [Concomitant]
     Active Substance: ALFACALCIDOL
     Dosage: 0.5 UG, QD
     Route: 048
     Dates: start: 20140317, end: 20150307
  18. CARBOCISTEINE [Concomitant]
     Active Substance: CARBOCYSTEINE
     Dosage: 1 DF, TID
     Route: 048
     Dates: start: 20151215, end: 20151222
  19. NEW LECICARBON [Concomitant]
     Active Substance: SODIUM BICARBONATE\SODIUM PHOSPHATE, MONOBASIC
     Indication: CONSTIPATION
     Dosage: UNK
     Route: 054
     Dates: start: 20130101
  20. OFLOXACIN. [Concomitant]
     Active Substance: OFLOXACIN
     Indication: CONJUNCTIVITIS
     Dosage: UNK
     Route: 047
     Dates: start: 20140602, end: 201408
  21. PETROLATUM. [Concomitant]
     Active Substance: PETROLATUM
     Dosage: UNK
     Route: 062
  22. SODIUM CHLORIDE. [Concomitant]
     Active Substance: SODIUM CHLORIDE
     Indication: HYPERCALCAEMIA
     Dosage: UNK UNK, 3/WEEK
     Route: 042
     Dates: start: 20140122, end: 20140207
  23. HUMULIN N [Concomitant]
     Active Substance: INSULIN HUMAN
     Dosage: 4 IU, QD
     Route: 050
     Dates: start: 20140813, end: 20140918
  24. HUMULIN N [Concomitant]
     Active Substance: INSULIN HUMAN
     Dosage: 2 IU, QD
     Route: 050
     Dates: start: 20141002, end: 20141015
  25. HUMULIN R [Concomitant]
     Active Substance: INSULIN HUMAN
     Dosage: 4 IU, BID
     Route: 050
     Dates: start: 20160519, end: 20160519
  26. EPOGIN [Concomitant]
     Active Substance: ERYTHROPOIETIN
     Dosage: 1500 IU, 3/WEEK
     Route: 050
     Dates: start: 20130208, end: 20130712
  27. EPOGIN [Concomitant]
     Active Substance: ERYTHROPOIETIN
     Dosage: 3000 IU, 3/WEEK
     Route: 050
     Dates: start: 20130715, end: 20150722
  28. EPOGIN [Concomitant]
     Active Substance: ERYTHROPOIETIN
     Dosage: 1500 IU, 3/WEEK
     Route: 050
     Dates: start: 20130902, end: 20131018
  29. EPOGIN [Concomitant]
     Active Substance: ERYTHROPOIETIN
     Dosage: UNK UNK, 3/WEEK
     Route: 050
     Dates: start: 20150217, end: 20150315
  30. FESIN                              /00023550/ [Concomitant]
     Active Substance: IRON SUCROSE
     Dosage: 40 MG, 1/WEEK
     Route: 042
     Dates: start: 20141201, end: 20150105
  31. BASSAMIN [Concomitant]
     Active Substance: ASPIRIN\DIHYDROXYALUMINUM AMINOACETATE\MAGNESIUM CARBONATE
     Indication: ANGINA PECTORIS
     Dosage: 81 MG, QD
     Route: 048
     Dates: start: 20121109, end: 20160519
  32. RENOPENT [Concomitant]
     Indication: HYPERTENSION
     Dosage: 5 MG, QD
     Route: 048
     Dates: start: 20130511, end: 20130524
  33. RESTOL                             /00514701/ [Concomitant]
     Indication: HYPERPARATHYROIDISM SECONDARY
     Dosage: 3 UG, 2/WEEK
     Route: 048
     Dates: start: 20121116, end: 20121122
  34. LANSOPRAZOLE. [Concomitant]
     Active Substance: LANSOPRAZOLE
     Indication: GASTROOESOPHAGEAL REFLUX DISEASE
     Dosage: 15 MG, QD
     Route: 048
     Dates: start: 20130329, end: 20160519
  35. YOUPIS [Concomitant]
     Indication: CONSTIPATION
     Dosage: 15 UNK, QD
     Route: 048
     Dates: start: 20141004
  36. CEFACLOR. [Concomitant]
     Active Substance: CEFACLOR
     Dosage: 1 DF, TID
     Route: 048
     Dates: start: 20160119, end: 20160122
  37. URIMOX [Concomitant]
     Dosage: UNK
     Route: 062
     Dates: start: 20141120
  38. PETROLATUM. [Concomitant]
     Active Substance: PETROLATUM
     Dosage: UNK
     Route: 062
     Dates: start: 20140612
  39. GEBEN [Concomitant]
     Active Substance: SILVER SULFADIAZINE
     Indication: SKIN ULCER
     Dosage: UNK
     Route: 062
     Dates: start: 20141203
  40. HUMULIN N [Concomitant]
     Active Substance: INSULIN HUMAN
     Indication: TYPE 2 DIABETES MELLITUS
     Dosage: 2 IU, QD
     Route: 050
     Dates: start: 20140809, end: 20140812
  41. EPOGIN [Concomitant]
     Active Substance: ERYTHROPOIETIN
     Indication: NEPHROGENIC ANAEMIA
     Dosage: 1500 IU, 3/WEEK
     Route: 050
     Dates: start: 20120822, end: 20121121
  42. EPOGIN [Concomitant]
     Active Substance: ERYTHROPOIETIN
     Dosage: 750 IU, 3/WEEK
     Route: 050
     Dates: start: 20121123, end: 20121130
  43. EPOGIN [Concomitant]
     Active Substance: ERYTHROPOIETIN
     Dosage: UNK UNK, 3/WEEK
     Route: 050
     Dates: start: 20121203, end: 20130206
  44. EPOGIN [Concomitant]
     Active Substance: ERYTHROPOIETIN
     Dosage: 750 IU, 3/WEEK
     Route: 050
     Dates: start: 20160223, end: 20160508
  45. FESIN                              /00023550/ [Concomitant]
     Active Substance: IRON SUCROSE
     Dosage: 40 MG, 1/WEEK
     Route: 042
     Dates: start: 20141006, end: 20141110
  46. HEPARIN [Concomitant]
     Active Substance: HEPARIN SODIUM
     Route: 065
  47. DALTEPAN [Concomitant]
     Dosage: UNK
     Route: 050
  48. NESINA [Suspect]
     Active Substance: ALOGLIPTIN BENZOATE
     Indication: TYPE 2 DIABETES MELLITUS
     Dosage: 6.25 MG, QD
     Route: 048
     Dates: start: 20131010, end: 20131110
  49. RENIVEZE [Concomitant]
     Active Substance: ENALAPRIL MALEATE
     Indication: HYPERTENSION
     Dosage: 5 MG, QD
     Route: 048
     Dates: start: 20121109, end: 20130510
  50. ENALAPRIL                          /00574902/ [Concomitant]
     Active Substance: ENALAPRIL
     Indication: HYPERTENSION
     Dosage: 5 MG, QD
     Route: 048
     Dates: start: 20130525, end: 20140528
  51. ENALAPRIL                          /00574902/ [Concomitant]
     Active Substance: ENALAPRIL
     Dosage: 5 MG, QD
     Route: 048
     Dates: start: 20140722, end: 20150531
  52. CORINAEL L [Concomitant]
     Indication: HYPERTENSION
     Dosage: 20 MG, BID
     Route: 048
     Dates: start: 20121109, end: 20130607
  53. NIFEDIPINE. [Concomitant]
     Active Substance: NIFEDIPINE
     Indication: HYPERTENSION
     Dosage: 20 MG, BID
     Route: 048
     Dates: start: 20130608, end: 20131111
  54. CARVEDILOL. [Concomitant]
     Active Substance: CARVEDILOL
     Indication: HYPERTENSION
     Dosage: 5 MG, QD
     Route: 048
     Dates: start: 20121229, end: 20140721
  55. NIFLAN [Concomitant]
     Active Substance: PRANOPROFEN
     Indication: EYE INFLAMMATION
     Dosage: UNK
     Route: 047
     Dates: start: 20131010, end: 20160519
  56. RESTAMIN                           /00000401/ [Concomitant]
     Active Substance: DIPHENHYDRAMINE
     Dosage: UNK
     Route: 062
     Dates: start: 20140522
  57. PETROLATUM. [Concomitant]
     Active Substance: PETROLATUM
     Dosage: UNK
     Route: 062
     Dates: start: 20141213
  58. OSTETONIN [Concomitant]
     Indication: HYPERCALCAEMIA
     Dosage: UNK UNK, 3/WEEK
     Route: 042
     Dates: start: 20140122, end: 20140207
  59. HUMULIN N [Concomitant]
     Active Substance: INSULIN HUMAN
     Dosage: 2 IU, QD
     Route: 050
     Dates: start: 20141118, end: 20141118
  60. HUMULIN N [Concomitant]
     Active Substance: INSULIN HUMAN
     Dosage: 6 IU, QD
     Route: 050
     Dates: start: 20150709, end: 20160517
  61. HUMULIN N [Concomitant]
     Active Substance: INSULIN HUMAN
     Dosage: 8 IU, QD
     Route: 050
     Dates: start: 20160518, end: 20160519
  62. CALFINA [Concomitant]
     Active Substance: ALFACALCIDOL
     Indication: HYPERPARATHYROIDISM SECONDARY
     Dosage: 0.25 UG, QD
     Route: 048
     Dates: start: 20121214, end: 20130124
  63. CALFINA [Concomitant]
     Active Substance: ALFACALCIDOL
     Dosage: 0.25 UG, 3/WEEK
     Route: 048
     Dates: start: 20130706, end: 20130914
  64. DAIPHEN [Concomitant]
     Active Substance: SULFAMETHOXAZOLE\TRIMETHOPRIM
     Indication: SKIN INFECTION
     Dosage: 1 DF, BID
     Route: 048
     Dates: start: 20160509, end: 20160513
  65. UREPEARL [Concomitant]
     Active Substance: UREA
     Dosage: UNK
     Route: 062
  66. ZINC OXIDE. [Concomitant]
     Active Substance: ZINC OXIDE
     Indication: SKIN ULCER
     Dosage: UNK
     Route: 062
     Dates: start: 20141213
  67. INNOLET N [Concomitant]
     Indication: TYPE 2 DIABETES MELLITUS
     Dosage: 3 IU, BID
     Route: 058
     Dates: end: 20121212
  68. EPOGIN [Concomitant]
     Active Substance: ERYTHROPOIETIN
     Dosage: 750 IU, 1/WEEK
     Route: 050
     Dates: start: 20160510, end: 20160518
  69. FESIN                              /00023550/ [Concomitant]
     Active Substance: IRON SUCROSE
     Dosage: 40 MG, 1/WEEK
     Route: 042
     Dates: start: 20150623, end: 20150728
  70. POSTERISAN FORTE                   /01567801/ [Concomitant]
     Indication: HAEMORRHOIDS
     Dosage: UNK
     Route: 065
     Dates: start: 20141118
  71. NESINA [Suspect]
     Active Substance: ALOGLIPTIN BENZOATE
     Dosage: 6.25 MG, QD
     Route: 048
     Dates: start: 20131116, end: 20140919
  72. ENALAPRIL                          /00574902/ [Concomitant]
     Active Substance: ENALAPRIL
     Dosage: 2.5 MG, QD
     Route: 048
     Dates: start: 20150601, end: 20150618
  73. CALFINA [Concomitant]
     Active Substance: ALFACALCIDOL
     Dosage: 0.25 UG, QD
     Route: 048
     Dates: start: 20130608, end: 20130621
  74. CALFINA [Concomitant]
     Active Substance: ALFACALCIDOL
     Dosage: 0.25 UG, QOD
     Route: 048
     Dates: start: 20130622, end: 20130705
  75. VANCOMYCIN                         /00314402/ [Concomitant]
     Active Substance: VANCOMYCIN
     Indication: SKIN INFECTION
     Dosage: 1 G, QD
     Route: 042
     Dates: start: 20160513, end: 20160513
  76. VANCOMYCIN                         /00314402/ [Concomitant]
     Active Substance: VANCOMYCIN
     Dosage: 0.5 G, QD
     Route: 042
     Dates: start: 20160517, end: 20160517
  77. HAOPLA [Concomitant]
     Indication: EYE INFLAMMATION
     Dosage: UNK
     Route: 047
  78. BIOFERMIN                          /01617201/ [Concomitant]
     Active Substance: BACILLUS SUBTILIS\LACTOBACILLUS ACIDOPHILUS\STREPTOCOCCUS FAECAIS
     Indication: ENTEROCOLITIS
     Dosage: 1 G, TID
     Route: 048
     Dates: start: 20140414, end: 20140418
  79. DERMOSOL                           /00008503/ [Concomitant]
     Indication: RASH ERYTHEMATOUS
     Dosage: UNK
     Route: 062
     Dates: start: 20140509, end: 20141029
  80. DEXAN G [Concomitant]
     Dosage: UNK
     Route: 062
     Dates: start: 20140602
  81. SALAZAC                            /07948101/ [Concomitant]
     Dosage: 1 G, TID
     Route: 048
     Dates: start: 20140813, end: 20140817
  82. GLUCOSE [Concomitant]
     Active Substance: DEXTROSE
     Indication: HYPOGLYCAEMIA
     Dosage: 10 G, QD
     Route: 048
     Dates: start: 20160321, end: 20160321
  83. GLUCOSE [Concomitant]
     Active Substance: DEXTROSE
     Indication: HYPOGLYCAEMIA
     Dosage: 20 ML, QD
     Route: 042
     Dates: start: 20160505, end: 20160505
  84. HUMULIN R [Concomitant]
     Active Substance: INSULIN HUMAN
     Indication: TYPE 2 DIABETES MELLITUS
     Dosage: 4 IU, BID
     Route: 050
     Dates: start: 20160518, end: 20160518
  85. SHINLUCK [Concomitant]
     Active Substance: SODIUM PICOSULFATE
     Indication: CONSTIPATION
     Route: 048
  86. NICORANDIL [Concomitant]
     Active Substance: NICORANDIL
     Indication: ANGINA PECTORIS
     Dosage: 5 MG, TID
     Route: 048
     Dates: start: 20031110, end: 20160519
  87. CALCIUM CARBONATE. [Concomitant]
     Active Substance: CALCIUM CARBONATE
     Dosage: 0.5 G, TID
     Route: 048
     Dates: start: 20121109, end: 20121208
  88. PANTETHINE [Concomitant]
     Active Substance: PANTETHINE
     Indication: CONSTIPATION
     Dosage: 1 G, TID
     Route: 048
     Dates: start: 20121210, end: 20140919
  89. SENNAL [Concomitant]
     Indication: CONSTIPATION
     Dosage: UNK UNK, QD
     Route: 048
     Dates: start: 20121102, end: 20160519
  90. MINOPEN [Concomitant]
     Active Substance: MINOCYCLINE HYDROCHLORIDE
     Indication: SKIN INFECTION
     Dosage: 1 DF, BID
     Route: 048
     Dates: start: 20160507, end: 20160509
  91. TAMIFLU [Concomitant]
     Active Substance: OSELTAMIVIR PHOSPHATE
     Indication: ANTIVIRAL PROPHYLAXIS
     Dosage: UNK UNK, QD
     Route: 048
     Dates: start: 20140303, end: 20140303
  92. STIBRON [Concomitant]
     Dosage: UNK
     Route: 062
     Dates: start: 20160113
  93. EPOGIN [Concomitant]
     Active Substance: ERYTHROPOIETIN
     Dosage: 300 IU, 3/WEEK
     Route: 050
     Dates: start: 20130724, end: 20130830
  94. EPOGIN [Concomitant]
     Active Substance: ERYTHROPOIETIN
     Dosage: 750 IU, 3/WEEK
     Route: 050
     Dates: start: 20131021, end: 20131115
  95. EPOGIN [Concomitant]
     Active Substance: ERYTHROPOIETIN
     Dosage: UNK UNK, 3/WEEK
     Route: 050
     Dates: start: 20140616, end: 20140930
  96. EPOGIN [Concomitant]
     Active Substance: ERYTHROPOIETIN
     Dosage: 750 IU, 2/WEEK
     Route: 050
     Dates: start: 20150317, end: 20150503
  97. EPOGIN [Concomitant]
     Active Substance: ERYTHROPOIETIN
     Dosage: 750 IU, 3/WEEK
     Route: 050
     Dates: start: 20150505, end: 20150517
  98. TRAZENTA [Concomitant]
     Active Substance: LINAGLIPTIN
     Indication: TYPE 2 DIABETES MELLITUS
     Dosage: UNK
     Route: 048
     Dates: start: 20121213, end: 20131009
  99. PARIET [Concomitant]
     Active Substance: RABEPRAZOLE SODIUM
     Dosage: UNK
     Route: 048
     Dates: start: 20121212
  100. BAYASPIRIN [Concomitant]
     Active Substance: ASPIRIN
     Indication: ANGINA PECTORIS
     Dosage: 100 MG, QD
     Route: 048
     Dates: start: 20031013, end: 20031109
  101. BAYASPIRIN [Concomitant]
     Active Substance: ASPIRIN
     Dosage: 100 MG, QD
     Route: 048
     Dates: start: 20051116, end: 20121108
  102. TICPILONE [Concomitant]
     Active Substance: TICLOPIDINE HYDROCHLORIDE
     Indication: HYPERTENSION
     Dosage: 100 MG, BID
     Route: 048
     Dates: start: 20121109, end: 20140919
  103. RESTOL                             /00514701/ [Concomitant]
     Dosage: 2 UG, 2/WEEK
     Route: 048
     Dates: start: 20121123, end: 20121217
  104. CALFINA [Concomitant]
     Active Substance: ALFACALCIDOL
     Dosage: 0.25 UG, QD
     Route: 048
     Dates: start: 20131012
  105. DERMOSOL                           /00008503/ [Concomitant]
     Indication: ERYTHEMA
     Dosage: UNK
     Route: 062
     Dates: start: 20160109, end: 20160519
  106. HUMULIN N [Concomitant]
     Active Substance: INSULIN HUMAN
     Dosage: 4 IU, QD
     Route: 050
     Dates: start: 20141016, end: 20141029
  107. EPOGIN [Concomitant]
     Active Substance: ERYTHROPOIETIN
     Dosage: 1500 IU, 3/WEEK
     Route: 050
     Dates: start: 20131118, end: 20140613
  108. EPOGIN [Concomitant]
     Active Substance: ERYTHROPOIETIN
     Dosage: 1500 IU, 3/WEEK
     Route: 050
     Dates: start: 20150519, end: 20150718
  109. EPOGIN [Concomitant]
     Active Substance: ERYTHROPOIETIN
     Dosage: 1500 IU, 2/WEEK
     Route: 050
     Dates: start: 20150720, end: 20151003
  110. FESIN                              /00023550/ [Concomitant]
     Active Substance: IRON SUCROSE
     Dosage: 40 MG, 1/WEEK
     Route: 042
     Dates: start: 20140308, end: 20140412
  111. BUIPEL [Concomitant]
     Dosage: UNK
     Route: 050
  112. ARICEPT [Concomitant]
     Active Substance: DONEPEZIL HYDROCHLORIDE
     Indication: DEMENTIA ALZHEIMER^S TYPE
     Dosage: UNK
     Route: 048
     Dates: start: 20110123, end: 20130820

REACTIONS (54)
  - General physical health deterioration [Fatal]
  - Haemorrhoidal haemorrhage [Unknown]
  - Influenza [Unknown]
  - Decubitus ulcer [Unknown]
  - Urticaria [Recovered/Resolved]
  - Pruritus [Unknown]
  - Blister [Unknown]
  - Erythema [Unknown]
  - Melaena [Unknown]
  - Dupuytren^s contracture [Unknown]
  - Conjunctivitis [Unknown]
  - Pigmentation disorder [Unknown]
  - Pyrexia [Unknown]
  - Pyrexia [Unknown]
  - Blister [Unknown]
  - Paronychia [Recovered/Resolved]
  - Scratch [Recovered/Resolved]
  - Melaena [Unknown]
  - Rash vesicular [Unknown]
  - Erythema [Unknown]
  - Skin erosion [Unknown]
  - Erythema [Unknown]
  - Skin erosion [Unknown]
  - Scab [Unknown]
  - Haemorrhoidal haemorrhage [Unknown]
  - Hepatic function abnormal [Recovered/Resolved]
  - Blister [Unknown]
  - Face oedema [Unknown]
  - Papule [Unknown]
  - Scratch [Unknown]
  - Dermatitis contact [Unknown]
  - Vulvar erosion [Unknown]
  - Anal erosion [Unknown]
  - Blister [Unknown]
  - Pemphigoid [Unknown]
  - Skin ulcer [Unknown]
  - Haemorrhoidal haemorrhage [Unknown]
  - Eyelid oedema [Recovered/Resolved]
  - Dermatitis contact [Unknown]
  - Blister [Unknown]
  - Blood blister [Unknown]
  - Skin erosion [Unknown]
  - Urticaria [Unknown]
  - Disseminated intravascular coagulation [Fatal]
  - Melaena [Fatal]
  - Loss of consciousness [Unknown]
  - Decubitus ulcer [Unknown]
  - Paronychia [Unknown]
  - Rash erythematous [Unknown]
  - Erythema [Unknown]
  - Decubitus ulcer [Recovered/Resolved]
  - Vomiting [Unknown]
  - Blister [Unknown]
  - Rash [Unknown]

NARRATIVE: CASE EVENT DATE: 20140311
